FAERS Safety Report 5085100-8 (Version None)
Quarter: 2006Q3

REPORT INFORMATION
  Report Type: 
  Country: None (occurrence: None)
  Receive Date: 20060816
  Receipt Date: 20060808
  Transmission Date: 20061208
  Serious: Yes (Disabling)
  Sender: FDA-Public Use
  Company Number: 863#1#2006-00008

PATIENT
  Age: 3 Year
  Sex: Male

DRUGS (2)
  1. IDROLAX (MACROGOL) [Suspect]
     Indication: CONSTIPATION
     Dosage: 8 G (10 G 1 IN 1 DAY (S)) ORAL
     Route: 048
  2. IMPORTAL (LACTITOL) [Concomitant]

REACTIONS (2)
  - URTICARIA [None]
  - VOMITING [None]
